FAERS Safety Report 8157587-5 (Version None)
Quarter: 2012Q1

REPORT INFORMATION
  Report Type: 
  Country: None (occurrence: None)
  Receive Date: 20120222
  Receipt Date: 20120106
  Transmission Date: 20120608
  Serious: No
  Sender: FDA-Public Use
  Company Number: US-ASTRAZENECA-2012SE01221

PATIENT
  Age: 65 Year
  Sex: Female
  Weight: 63.5 kg

DRUGS (4)
  1. TENORMIN [Suspect]
     Route: 048
     Dates: start: 20101201, end: 20111201
  2. FOSAMAX [Concomitant]
     Indication: BONE DISORDER
  3. TENORMIN [Suspect]
     Indication: VENTRICULAR TACHYCARDIA
     Route: 048
  4. CARDIA XT [Concomitant]
     Indication: BLOOD PRESSURE ABNORMAL

REACTIONS (8)
  - PIGMENTATION DISORDER [None]
  - SKIN DISCOLOURATION [None]
  - BRUXISM [None]
  - FOOT DEFORMITY [None]
  - PRURITUS [None]
  - SWOLLEN TONGUE [None]
  - OCULAR HYPERAEMIA [None]
  - WEIGHT INCREASED [None]
